FAERS Safety Report 15657130 (Version 1)
Quarter: 2018Q4

REPORT INFORMATION
  Report Type: Report from Study
  Country: ES (occurrence: ES)
  Receive Date: 20181126
  Receipt Date: 20181126
  Transmission Date: 20190205
  Serious: Yes (Other)
  Sender: FDA-Public Use
  Company Number: ES-SAKK-2018SA157387AA

PATIENT
  Age: 70 Year
  Sex: Female

DRUGS (7)
  1. SEVIKAR [Concomitant]
     Active Substance: AMLODIPINE BESYLATE\OLMESARTAN MEDOXOMIL
     Dosage: 1 DF, QD
     Dates: start: 20160804
  2. AFLIBERCEPT [Suspect]
     Active Substance: AFLIBERCEPT
     Indication: COLORECTAL CANCER RECURRENT
     Dosage: 336 MG, QCY
     Route: 042
     Dates: start: 20160804, end: 20160804
  3. AFLIBERCEPT [Suspect]
     Active Substance: AFLIBERCEPT
     Dosage: 336 MG, QCY
     Route: 042
     Dates: start: 20170511, end: 20170511
  4. IRINOTECAN [Suspect]
     Active Substance: IRINOTECAN
     Indication: COLORECTAL CANCER RECURRENT
     Dosage: 275 MG, QCY
     Route: 042
     Dates: start: 20160804, end: 20160804
  5. DUROGESIC [Concomitant]
     Active Substance: FENTANYL
     Dosage: UNK UNK, Q3D
     Route: 062
     Dates: start: 20160804
  6. IRINOTECAN [Suspect]
     Active Substance: IRINOTECAN
     Dosage: 275 UNK
     Dates: start: 20170511, end: 20170511
  7. NEURONTIN [Concomitant]
     Active Substance: GABAPENTIN
     Dosage: 800 MG, Q12H
     Route: 048
     Dates: start: 20160804

REACTIONS (1)
  - Hepatitis [Recovered/Resolved]

NARRATIVE: CASE EVENT DATE: 20170709
